FAERS Safety Report 7861775-2 (Version None)
Quarter: 2011Q4

REPORT INFORMATION
  Report Type: 
  Country: None (occurrence: None)
  Receive Date: 20111026
  Receipt Date: 20111020
  Transmission Date: 20120403
  Serious: Yes (Other)
  Sender: FDA-Public Use
  Company Number: GER/UKI/11/0018776

PATIENT
  Age: 44 Year
  Sex: Male
  Weight: 74.4 kg

DRUGS (6)
  1. FERROUS SUPHATE (FERROUS SULFATE) [Concomitant]
  2. SCOPOLAMINE [Suspect]
     Indication: IRRITABLE BOWEL SYNDROME
     Dosage: 10 MG, ORAL
     Route: 048
  3. RISPERIDONE [Suspect]
     Indication: PRODUCT USED FOR UNKNOWN INDICATION
  4. CLOZARIL [Suspect]
     Indication: SCHIZOPHRENIA
     Dosage: 400 MG, ORAL
  5. HYOSCINE HYDROBROMIDE (HYOSCINE HYDROBROMIDE) [Concomitant]
  6. SERTRALINE HYDROCHLORIDE [Concomitant]

REACTIONS (14)
  - MICROCYTIC ANAEMIA [None]
  - NEUTROPENIA [None]
  - IDEAS OF REFERENCE [None]
  - SEASONAL ALLERGY [None]
  - HALLUCINATION, AUDITORY [None]
  - WHITE BLOOD CELL COUNT DECREASED [None]
  - IRON DEFICIENCY ANAEMIA [None]
  - RED BLOOD CELL ELLIPTOCYTES PRESENT [None]
  - WEIGHT DECREASED [None]
  - VOMITING [None]
  - SALIVARY HYPERSECRETION [None]
  - PLATELET COUNT DECREASED [None]
  - PERSECUTORY DELUSION [None]
  - RED BLOOD CELL TARGET CELLS PRESENT [None]
